FAERS Safety Report 25371908 (Version 1)
Quarter: 2025Q2

REPORT INFORMATION
  Report Type: Spontaneous
  Country: US (occurrence: US)
  Receive Date: 20250529
  Receipt Date: 20250529
  Transmission Date: 20250717
  Serious: Yes (Other)
  Sender: PHARMACOSMOS A/S
  Company Number: US-NEBO-696471

PATIENT
  Sex: Female

DRUGS (1)
  1. MONOFERRIC [Suspect]
     Active Substance: FERRIC DERISOMALTOSE
     Indication: Product used for unknown indication
     Dates: start: 202505, end: 202505

REACTIONS (7)
  - Medication error [Recovered/Resolved]
  - Restlessness [Unknown]
  - Incorrect dose administered [Recovered/Resolved]
  - Dyspnoea [Unknown]
  - Loss of consciousness [Unknown]
  - Pain [Unknown]
  - Chest discomfort [Unknown]

NARRATIVE: CASE EVENT DATE: 20250501
